FAERS Safety Report 5616665-2 (Version None)
Quarter: 2008Q1

REPORT INFORMATION
  Report Type: 
  Country: None (occurrence: None)
  Receive Date: 20080207
  Receipt Date: 20080130
  Transmission Date: 20080703
  Serious: Yes (Other)
  Sender: FDA-Public Use
  Company Number: PHHY2008CA01029

PATIENT
  Age: 52 Year
  Sex: Male

DRUGS (3)
  1. DIOVAN [Suspect]
     Route: 048
  2. ACE INHIBITOR NOS [Concomitant]
  3. MAVIK [Concomitant]
     Dosage: 1 MG, UNK
     Dates: start: 20071213

REACTIONS (4)
  - BLOOD PRESSURE INCREASED [None]
  - GLOMERULAR FILTRATION RATE INCREASED [None]
  - MICROALBUMINURIA [None]
  - URINE ALBUMIN/CREATININE RATIO [None]
